FAERS Safety Report 25432506 (Version 1)
Quarter: 2025Q2

REPORT INFORMATION
  Report Type: Report from Study
  Country: NO (occurrence: NO)
  Receive Date: 20250613
  Receipt Date: 20250613
  Transmission Date: 20250717
  Serious: Yes (Hospitalization)
  Sender: ROCHE
  Company Number: NO-ROCHE-10000309371

PATIENT

DRUGS (2)
  1. RITUXIMAB [Suspect]
     Active Substance: RITUXIMAB
     Indication: Relapsing-remitting multiple sclerosis
     Route: 042
  2. RITUXIMAB [Suspect]
     Active Substance: RITUXIMAB
     Route: 042

REACTIONS (9)
  - COVID-19 [Unknown]
  - Off label use [Unknown]
  - Cardiovascular disorder [Unknown]
  - Urogenital disorder [Unknown]
  - Respiratory disorder [Unknown]
  - Neoplasm [Unknown]
  - Ill-defined disorder [Unknown]
  - Infection [Unknown]
  - Infection parasitic [Unknown]
